FAERS Safety Report 9637345 (Version 2)
Quarter: 2013Q4

REPORT INFORMATION
  Report Type: Report from Study
  Country: US (occurrence: US)
  Receive Date: 20131022
  Receipt Date: 20131107
  Transmission Date: 20140711
  Serious: Yes (Death, Other)
  Sender: FDA-Public Use
  Company Number: PHEH2013US021927

PATIENT
  Age: 92 Year
  Sex: Female
  Weight: 60.36 kg

DRUGS (4)
  1. AFINITOR [Suspect]
     Indication: BREAST CANCER
     Dosage: 5 MG, BID
     Route: 048
     Dates: start: 20130213, end: 20130830
  2. AROMASIN [Concomitant]
     Indication: BREAST CANCER
     Dosage: 25 MG, DAILY
     Route: 048
     Dates: start: 20130213, end: 20131013
  3. XGEVA [Concomitant]
     Indication: METASTASES TO BONE
     Dosage: 120 MG
     Route: 058
     Dates: start: 20120810, end: 20130910
  4. HERCEPTIN [Concomitant]
     Indication: BREAST CANCER
     Dosage: 375 MG, EVERY 3 WEEKS
     Route: 042

REACTIONS (4)
  - Death [Fatal]
  - Pleural effusion [Recovered/Resolved]
  - Fluid overload [Recovered/Resolved]
  - Oedema [Recovered/Resolved]
